FAERS Safety Report 9457733 (Version 1)
Quarter: 2013Q3

REPORT INFORMATION
  Report Type: Spontaneous
  Country: US (occurrence: None)
  Receive Date: 20130812
  Receipt Date: 20130812
  Transmission Date: 20140515
  Serious: Yes (Life-Threatening, Hospitalization)
  Sender: FDA-Public Use
  Company Number: None

PATIENT
  Age: 59 Year
  Sex: Female
  Weight: 94 kg

DRUGS (8)
  1. COPAXONE [Suspect]
     Indication: MULTIPLE SCLEROSIS
     Route: 058
  2. ASPIRIN [Concomitant]
  3. OS-CAL [Concomitant]
  4. CHOLECALCIFEROL [Concomitant]
  5. CITALOPRAM [Concomitant]
  6. ADVAIR [Concomitant]
  7. CLARITIN-D [Concomitant]
  8. MULTIVITAMIN [Concomitant]

REACTIONS (8)
  - Asthenia [None]
  - Fatigue [None]
  - Eosinophilia [None]
  - Leukocytosis [None]
  - Pulmonary oedema [None]
  - Respiratory failure [None]
  - Hypotension [None]
  - Ejection fraction decreased [None]
